FAERS Safety Report 4781618-3 (Version None)
Quarter: 2005Q3

REPORT INFORMATION
  Report Type: 
  Country: None (occurrence: None)
  Receive Date: 20050928
  Receipt Date: 20050922
  Transmission Date: 20060218
  Serious: Yes (Other)
  Sender: FDA-Public Use
  Company Number: 2005UW14225

PATIENT
  Age: 53 Year
  Sex: Male

DRUGS (4)
  1. SEROQUEL [Suspect]
     Route: 048
  2. EFFEXOR [Suspect]
     Route: 048
  3. EFFEXOR XR [Suspect]
  4. ETHANOL [Suspect]
     Route: 048

REACTIONS (25)
  - AGITATION [None]
  - AMNESIA [None]
  - BLOOD CREATINE PHOSPHOKINASE INCREASED [None]
  - DISORIENTATION [None]
  - DRUG WITHDRAWAL SYNDROME [None]
  - ELECTROCARDIOGRAM QRS COMPLEX PROLONGED [None]
  - ELECTROCARDIOGRAM QT PROLONGED [None]
  - GRAND MAL CONVULSION [None]
  - HYPERHIDROSIS [None]
  - HYPOTENSION [None]
  - HYPOXIA [None]
  - LETHARGY [None]
  - LEUKOCYTOSIS [None]
  - LOSS OF CONSCIOUSNESS [None]
  - METABOLIC ACIDOSIS [None]
  - MIOSIS [None]
  - MUSCLE CONTRACTIONS INVOLUNTARY [None]
  - MYOCLONUS [None]
  - NEUROLEPTIC MALIGNANT SYNDROME [None]
  - PNEUMONIA [None]
  - PUPILLARY REFLEX IMPAIRED [None]
  - PYREXIA [None]
  - RESPIRATORY DEPRESSION [None]
  - SEROTONIN SYNDROME [None]
  - TACHYPNOEA [None]
